FAERS Safety Report 8922946 (Version 1)
Quarter: 2012Q4

REPORT INFORMATION
  Report Type: Spontaneous
  Country: US (occurrence: None)
  Receive Date: 20121115
  Receipt Date: 20121115
  Transmission Date: 20130627
  Serious: Yes (Other)
  Sender: FDA-Public Use
  Company Number: None

PATIENT

DRUGS (1)
  1. ECONAZOLE [Suspect]
     Indication: FUNGAL SKIN INFECTION
     Dates: start: 20121105, end: 20121105

REACTIONS (7)
  - Skin burning sensation [None]
  - Feeling cold [None]
  - Chills [None]
  - Nausea [None]
  - Asthenia [None]
  - Tremor [None]
  - Diarrhoea [None]
